FAERS Safety Report 16128076 (Version 1)
Quarter: 2019Q1

REPORT INFORMATION
  Report Type: Spontaneous
  Country: US (occurrence: US)
  Receive Date: 20190328
  Receipt Date: 20190328
  Transmission Date: 20190418
  Serious: Yes (Other)
  Sender: FDA-Public Use
  Company Number: US-SA-2017SA265419

PATIENT
  Age: 48 Year
  Sex: Female
  Weight: 51 kg

DRUGS (7)
  1. SODIUM CHLORIDE. [Concomitant]
     Active Substance: SODIUM CHLORIDE
  2. TAXOTERE [Suspect]
     Active Substance: DOCETAXEL
     Indication: BREAST CANCER FEMALE
     Dosage: 114.8 MG, Q3W
     Route: 042
     Dates: start: 20140904, end: 20140904
  3. ATIVAN [Concomitant]
     Active Substance: LORAZEPAM
  4. ARMOUR THYROID [Concomitant]
     Active Substance: THYROID, PORCINE
  5. PARAPLATIN [Concomitant]
     Active Substance: CARBOPLATIN
     Dosage: 679 MG
  6. TAXOTERE [Suspect]
     Active Substance: DOCETAXEL
     Dosage: 114.8 MG, Q3W
     Route: 042
     Dates: start: 20150101, end: 20150101
  7. HERCEPTIN [Concomitant]
     Active Substance: TRASTUZUMAB

REACTIONS (6)
  - Anxiety [Unknown]
  - Emotional distress [Unknown]
  - Pain [Unknown]
  - Impaired quality of life [Unknown]
  - Psychological trauma [Unknown]
  - Alopecia [Recovering/Resolving]

NARRATIVE: CASE EVENT DATE: 20141001
